FAERS Safety Report 15389428 (Version 1)
Quarter: 2018Q3

REPORT INFORMATION
  Report Type: Spontaneous
  Country: NL (occurrence: NL)
  Receive Date: 20180917
  Receipt Date: 20180917
  Transmission Date: 20181010
  Serious: Yes (Other)
  Sender: FDA-Public Use
  Company Number: NL-EMD SERONO-9043200

PATIENT
  Sex: Female

DRUGS (1)
  1. REBIF [Suspect]
     Active Substance: INTERFERON BETA-1A
     Indication: MULTIPLE SCLEROSIS
     Dates: end: 2012

REACTIONS (4)
  - Renal failure [Unknown]
  - Mood swings [Unknown]
  - Hepatic failure [Unknown]
  - Depression [Unknown]
